FAERS Safety Report 14439861 (Version 1)
Quarter: 2018Q1

REPORT INFORMATION
  Report Type: Spontaneous
  Country: ES (occurrence: ES)
  Receive Date: 20180125
  Receipt Date: 20180125
  Transmission Date: 20180509
  Serious: Yes (Other)
  Sender: FDA-Public Use
  Company Number: ES-MYLANLABS-2018M1005134

PATIENT
  Age: 4 Year
  Sex: Female

DRUGS (2)
  1. BUDESONIDE MYLAN (GENERIC PRODUCT - MANUFACTURER: MYLAN) [Suspect]
     Active Substance: BUDESONIDE
     Indication: ASTHMATIC CRISIS
     Dosage: UNK
  2. MONTELUKAST [Concomitant]
     Active Substance: MONTELUKAST SODIUM
     Indication: PRODUCT USED FOR UNKNOWN INDICATION
     Dosage: UNK

REACTIONS (1)
  - Bronchospasm [Unknown]
